FAERS Safety Report 10517449 (Version 1)
Quarter: 2014Q4

REPORT INFORMATION
  Report Type: Spontaneous
  Country: US (occurrence: None)
  Receive Date: 20141003
  Receipt Date: 20141003
  Transmission Date: 20150528
  Serious: Yes (Hospitalization)
  Sender: FDA-Public Use
  Company Number: 1245292

PATIENT
  Age: 53 Year
  Sex: Female

DRUGS (4)
  1. INCIVEK [Suspect]
     Active Substance: TELAPREVIR
     Indication: CHRONIC HEPATITIS C
     Dosage: 2050 MG (1025 MG, 2 IN 1)
     Dates: start: 20130625
  2. NITROGLYCERINE [Suspect]
     Active Substance: NITROGLYCERIN
     Indication: PRODUCT USED FOR UNKNOWN INDICATION
  3. PEGASYS [Suspect]
     Active Substance: PEGINTERFERON ALFA-2A
     Indication: CHRONIC HEPATITIS C
     Route: 058
     Dates: start: 20130625
  4. RIBAVIRIN (RIBAVIRIN) [Suspect]
     Active Substance: RIBAVIRIN
     Indication: CHRONIC HEPATITIS C
     Dosage: 1200 MG (DAILY DIVIDED DOSES)
     Route: 048
     Dates: start: 20130625

REACTIONS (9)
  - Tremor [None]
  - Headache [None]
  - Nausea [None]
  - Hyperhidrosis [None]
  - Chest discomfort [None]
  - Dyspnoea [None]
  - Vomiting [None]
  - Dizziness [None]
  - Asthenia [None]

NARRATIVE: CASE EVENT DATE: 20130705
